FAERS Safety Report 9661570 (Version 2)
Quarter: 2013Q4

REPORT INFORMATION
  Report Type: Spontaneous
  Country: US (occurrence: US)
  Receive Date: 20131031
  Receipt Date: 20131031
  Transmission Date: 20140711
  Serious: No
  Sender: FDA-Public Use
  Company Number: US-PURDUE-USA-2010-0054811

PATIENT
  Age: 54 Year
  Sex: Female

DRUGS (3)
  1. OXYCONTIN (NDA 22-272) [Suspect]
     Indication: SCIATICA
     Dosage: 40 MG, QID
     Dates: start: 20100917
  2. OXYCONTIN (NDA 22-272) [Suspect]
     Indication: NERVE INJURY
  3. TYLENOL                            /00020001/ [Concomitant]
     Indication: PAIN MANAGEMENT
     Dosage: UNK

REACTIONS (5)
  - Chest pain [Not Recovered/Not Resolved]
  - Therapeutic response delayed [Not Recovered/Not Resolved]
  - Drug effect decreased [Not Recovered/Not Resolved]
  - Inadequate analgesia [Not Recovered/Not Resolved]
  - Intentional drug misuse [Unknown]
